FAERS Safety Report 6739477-5 (Version None)
Quarter: 2010Q2

REPORT INFORMATION
  Report Type: 
  Country: None (occurrence: None)
  Receive Date: 20100521
  Receipt Date: 20090522
  Transmission Date: 20101027
  Serious: Yes (Death)
  Sender: FDA-Public Use
  Company Number: 2009-2445

PATIENT
  Age: 54 Year
  Sex: Male

DRUGS (8)
  1. APO-GO AMPOULES (APO-GO) (APOMORPHINE HYDROCHLORIDE) (APOMORPHINE HYDR [Suspect]
     Indication: PARKINSON'S DISEASE
     Dosage: 19.2 MG (1.6 MG, 12 IN 24 HR), SUBCUTANEOUS; (9 MG, 1 IN 1 HR), SUBCUTANEOUS
     Route: 058
     Dates: start: 20090312, end: 20090407
  2. APO-GO AMPOULES (APO-GO) (APOMORPHINE HYDROCHLORIDE) (APOMORPHINE HYDR [Suspect]
     Indication: PARKINSON'S DISEASE
     Dosage: 19.2 MG (1.6 MG, 12 IN 24 HR), SUBCUTANEOUS; (9 MG, 1 IN 1 HR), SUBCUTANEOUS
     Route: 058
     Dates: start: 20090408, end: 20090418
  3. REQUIP MODUTAB (ROPINIROLE HYDROCHLORIDE) (ROPINIROLE HYDROCHLORIDE) [Concomitant]
  4. AZILECT (RASAGILINE) (RASAGILINE MESYLATE) [Concomitant]
  5. MADOPAR (MADOPAR /00349201/) (BENSERAZIDE HYDROCHLORIDE, LEVODOPA) [Concomitant]
  6. MADOPAR 100 (MADOPAR /00349201/) [Concomitant]
  7. PK MERZ (AMANTADINE) (AMANTADINE SULFATE) [Concomitant]
  8. DYTIDE H (DYAZIDE) (AMANTADINE SULFATE) [Concomitant]

REACTIONS (5)
  - CONDITION AGGRAVATED [None]
  - FALL [None]
  - OEDEMA [None]
  - PARKINSON'S DISEASE [None]
  - TREMOR [None]
